FAERS Safety Report 6152907-5 (Version None)
Quarter: 2009Q2

REPORT INFORMATION
  Report Type: 
  Country: None (occurrence: None)
  Receive Date: 20090409
  Receipt Date: 20090327
  Transmission Date: 20091009
  Serious: Yes (Other)
  Sender: FDA-Public Use
  Company Number: 233312K09USA

PATIENT
  Sex: Female
  Weight: 89 kg

DRUGS (1)
  1. REBIF [Suspect]
     Indication: MULTIPLE SCLEROSIS
     Dosage: 44 MCG, 3 IN 1 WEEKS, SUBCUTANEOUS
     Route: 058
     Dates: start: 20030101, end: 20040701

REACTIONS (5)
  - CHEST PAIN [None]
  - DRUG EFFECT DECREASED [None]
  - DYSPNOEA [None]
  - LYMPHOEDEMA [None]
  - PLEURAL EFFUSION [None]
